FAERS Safety Report 6071844-8 (Version None)
Quarter: 2009Q1

REPORT INFORMATION
  Report Type: 
  Country: None (occurrence: None)
  Receive Date: 20090210
  Receipt Date: 20090203
  Transmission Date: 20090719
  Serious: Yes (Other)
  Sender: FDA-Public Use
  Company Number: US-ABBOTT-09P-163-0501367-00

PATIENT
  Sex: Female
  Weight: 71.278 kg

DRUGS (5)
  1. HUMIRA [Suspect]
     Indication: CROHN'S DISEASE
     Route: 058
     Dates: start: 20080817
  2. UNKNOWN PILL [Suspect]
     Indication: CANDIDIASIS
     Dates: end: 20081201
  3. VITAMINS [Concomitant]
     Indication: CROHN'S DISEASE
  4. NAPROXEN [Concomitant]
     Indication: BONE PAIN
  5. TYLENOL [Concomitant]
     Indication: BONE PAIN

REACTIONS (11)
  - ALOPECIA [None]
  - BLOOD POTASSIUM DECREASED [None]
  - CANDIDIASIS [None]
  - DIARRHOEA [None]
  - FATIGUE [None]
  - HEADACHE [None]
  - HEART RATE DECREASED [None]
  - HYPOTENSION [None]
  - MALAISE [None]
  - MOVEMENT DISORDER [None]
  - RHINORRHOEA [None]
